FAERS Safety Report 9421101 (Version 1)
Quarter: 2013Q3

REPORT INFORMATION
  Report Type: Spontaneous
  Country: US (occurrence: US)
  Receive Date: 20130725
  Receipt Date: 20130725
  Transmission Date: 20140515
  Serious: Yes (Hospitalization)
  Sender: FDA-Public Use
  Company Number: US-GILEAD-2013-0077005

PATIENT
  Sex: Male

DRUGS (12)
  1. LETAIRIS [Suspect]
     Indication: PULMONARY ARTERIAL HYPERTENSION
     Dosage: 5 MG, QD
     Route: 048
     Dates: start: 20110809
  2. LETAIRIS [Suspect]
     Dosage: 10 MG, UNK
  3. ERGOCALCIFEROL [Concomitant]
  4. FOLIC ACID [Concomitant]
  5. HYDROMORPHONE [Concomitant]
  6. LISINOPRIL [Concomitant]
  7. NAPROXEN [Concomitant]
  8. NYSTATIN [Concomitant]
  9. OXYCODONE [Concomitant]
  10. POLYETHYLENE GLYCOL [Concomitant]
  11. REMODULIN [Concomitant]
  12. OXYGEN [Concomitant]

REACTIONS (1)
  - Pulmonary hypertension [Recovering/Resolving]
